FAERS Safety Report 20027225 (Version 1)
Quarter: 2021Q4

REPORT INFORMATION
  Report Type: Spontaneous
  Country: AU (occurrence: AU)
  Receive Date: 20211103
  Receipt Date: 20211103
  Transmission Date: 20220304
  Serious: Yes (Death, Other)
  Sender: FDA-Public Use
  Company Number: AU-ABBVIE-21K-008-4146133-00

PATIENT
  Age: 43 Year
  Sex: Female

DRUGS (1)
  1. VALPROATE SODIUM [Suspect]
     Active Substance: VALPROATE SODIUM
     Indication: Product used for unknown indication
     Route: 065

REACTIONS (6)
  - Death [Fatal]
  - Multiple organ dysfunction syndrome [Unknown]
  - Hyperammonaemic encephalopathy [Unknown]
  - Coma [Unknown]
  - Somnolence [Unknown]
  - Intentional overdose [Unknown]
